FAERS Safety Report 13425271 (Version 1)
Quarter: 2017Q2

REPORT INFORMATION
  Report Type: Spontaneous
  Country: FR (occurrence: FR)
  Receive Date: 20170411
  Receipt Date: 20170411
  Transmission Date: 20170830
  Serious: Yes (Hospitalization)
  Sender: FDA-Public Use
  Company Number: FR-ORION CORPORATION ORION PHARMA-ENTC2017-0150

PATIENT
  Age: 72 Year
  Sex: Male

DRUGS (2)
  1. SINEMET [Suspect]
     Active Substance: CARBIDOPA\LEVODOPA
     Indication: PROGRESSIVE SUPRANUCLEAR PALSY
     Dosage: STRENGTH: 10/100 MG
     Route: 048
     Dates: start: 201609
  2. STALEVO [Suspect]
     Active Substance: CARBIDOPA\ENTACAPONE\LEVODOPA
     Indication: PROGRESSIVE SUPRANUCLEAR PALSY
     Dosage: STRENGTH: 200 MG
     Route: 048
     Dates: start: 201609

REACTIONS (3)
  - Product use in unapproved indication [Unknown]
  - Frontotemporal dementia [Unknown]
  - Sexually inappropriate behaviour [Unknown]

NARRATIVE: CASE EVENT DATE: 201701
